FAERS Safety Report 14661739 (Version 4)
Quarter: 2018Q2

REPORT INFORMATION
  Report Type: Spontaneous
  Country: US (occurrence: US)
  Receive Date: 20180320
  Receipt Date: 20180416
  Transmission Date: 20180711
  Serious: Yes (Other)
  Sender: FDA-Public Use
  Company Number: US-ALLERGAN-1812446US

PATIENT
  Age: 80 Year
  Sex: Female

DRUGS (1)
  1. REFRESH LACRI-LUBE [Suspect]
     Active Substance: MINERAL OIL\PETROLATUM
     Indication: DRY EYE
     Dosage: 2 GTT, QHS
     Route: 047
     Dates: start: 1978, end: 20180305

REACTIONS (6)
  - Expired product administered [Unknown]
  - Drug dose omission [Unknown]
  - Eye discharge [Recovered/Resolved]
  - Vision blurred [Recovered/Resolved]
  - Product supply issue [Unknown]
  - Endocrine ophthalmopathy [Recovered/Resolved]

NARRATIVE: CASE EVENT DATE: 1993
